FAERS Safety Report 14650618 (Version 1)
Quarter: 2018Q1

REPORT INFORMATION
  Report Type: Spontaneous
  Country: NO (occurrence: NO)
  Receive Date: 20180316
  Receipt Date: 20180316
  Transmission Date: 20180509
  Serious: Yes (Other)
  Sender: FDA-Public Use
  Company Number: NO-009507513-1803NOR002304

PATIENT
  Age: 65 Year
  Sex: Male

DRUGS (3)
  1. EXVIERA [Suspect]
     Active Substance: DASABUVIR
     Indication: CHRONIC HEPATITIS C
     Dosage: UNK
     Route: 048
     Dates: start: 20170111
  2. RIBAVIRIN. [Suspect]
     Active Substance: RIBAVIRIN
     Indication: CHRONIC HEPATITIS C
     Route: 065
     Dates: start: 20170111
  3. VIEKIRAX [Suspect]
     Active Substance: OMBITASVIR\PARITAPREVIR\RITONAVIR
     Indication: CHRONIC HEPATITIS C
     Dosage: UNK
     Route: 048
     Dates: start: 20170111

REACTIONS (17)
  - Renal failure [Unknown]
  - Pleural effusion [Unknown]
  - Pruritus [Unknown]
  - Asthenia [Unknown]
  - Pneumonia aspiration [Unknown]
  - Child-Pugh-Turcotte score increased [Unknown]
  - Blood bilirubin increased [Unknown]
  - Liver transplant rejection [Unknown]
  - Acute on chronic liver failure [Recovered/Resolved with Sequelae]
  - Cholelithiasis [Unknown]
  - Jaundice [Unknown]
  - Urine output decreased [Unknown]
  - Ascites [Unknown]
  - Child-Pugh-Turcotte score increased [Unknown]
  - Transaminases increased [Unknown]
  - Encephalopathy [Unknown]
  - Hepatorenal syndrome [Unknown]

NARRATIVE: CASE EVENT DATE: 20170118
